FAERS Safety Report 18717994 (Version 1)
Quarter: 2021Q1

REPORT INFORMATION
  Report Type: Spontaneous
  Country: US (occurrence: US)
  Receive Date: 20210108
  Receipt Date: 20210108
  Transmission Date: 20210419
  Serious: No
  Sender: FDA-Public Use
  Company Number: None

PATIENT
  Age: 10 Year
  Sex: Female
  Weight: 28.8 kg

DRUGS (4)
  1. GAMUNEX?C [Suspect]
     Active Substance: HUMAN IMMUNOGLOBULIN G
     Indication: ENCEPHALOPATHY
     Dosage: ?          OTHER FREQUENCY:2 DAY Q5W;?
     Route: 042
     Dates: start: 20210107, end: 20210107
  2. GAMUNEX?C [Suspect]
     Active Substance: HUMAN IMMUNOGLOBULIN G
     Indication: ENCEPHALOPATHY
     Dosage: ?          OTHER FREQUENCY:2 DAYS Q5W;?
     Route: 042
     Dates: start: 20210107, end: 20210107
  3. FLUSH NORMAL SALINE 0.9% 10 ML [Concomitant]
     Dates: start: 20210107, end: 20210107
  4. SODIUM CHLORIDE 0.9% 250 ML [Concomitant]
     Dates: start: 20210107, end: 20210107

REACTIONS (4)
  - Rash [None]
  - Pruritus [None]
  - Urticaria [None]
  - Product quality issue [None]

NARRATIVE: CASE EVENT DATE: 20210107
